FAERS Safety Report 4555452-3 (Version None)
Quarter: 2005Q1

REPORT INFORMATION
  Report Type: 
  Country: None (occurrence: None)
  Receive Date: 20050118
  Receipt Date: 20050118
  Transmission Date: 20050727
  Serious: Yes (Death)
  Sender: FDA-Public Use
  Company Number: None

PATIENT
  Age: 83 Year
  Sex: Female
  Weight: 81.6475 kg

DRUGS (3)
  1. CELEBREX [Suspect]
     Indication: ARTHRALGIA
     Dosage: 1 CAPSULE  ONCE DAILY  ORAL
     Route: 048
     Dates: start: 20030214, end: 20040410
  2. CELEBREX [Suspect]
     Indication: ARTHRALGIA
     Dosage: 1 CAPSULE   TWICE DAILY   ORAL
     Route: 048
     Dates: start: 20040411, end: 20040909
  3. CELEBREX [Suspect]
     Indication: BACK PAIN
     Dosage: 1 CAPSULE   TWICE DAILY   ORAL
     Route: 048
     Dates: start: 20040411, end: 20040909

REACTIONS (14)
  - ASPIRATION [None]
  - ASTHENIA [None]
  - ATRIAL FIBRILLATION [None]
  - BLOOD ELECTROLYTES DECREASED [None]
  - BLOOD PRESSURE DECREASED [None]
  - BLOOD SODIUM DECREASED [None]
  - DUODENAL ULCER PERFORATION [None]
  - GASTRIC PERFORATION [None]
  - GASTROINTESTINAL HAEMORRHAGE [None]
  - HAEMATEMESIS [None]
  - IMPAIRED HEALING [None]
  - INTESTINAL PERFORATION [None]
  - MALAISE [None]
  - RESPIRATORY FAILURE [None]
